FAERS Safety Report 25467041 (Version 1)
Quarter: 2025Q2

REPORT INFORMATION
  Report Type: Spontaneous
  Country: US (occurrence: US)
  Receive Date: 20250623
  Receipt Date: 20250623
  Transmission Date: 20250716
  Serious: No
  Sender: AMGEN
  Company Number: US-AMGEN-USASP2025120593

PATIENT
  Sex: Male

DRUGS (2)
  1. UPLIZNA [Suspect]
     Active Substance: INEBILIZUMAB-CDON
     Indication: Exposure during pregnancy
     Route: 064
  2. ULTOMIRIS [Concomitant]
     Active Substance: RAVULIZUMAB-CWVZ
     Indication: Exposure during pregnancy
     Route: 064

REACTIONS (4)
  - B-lymphocyte count decreased [Unknown]
  - Foetal exposure during pregnancy [Recovered/Resolved]
  - Premature baby [Unknown]
  - Decreased immune responsiveness [Unknown]

NARRATIVE: CASE EVENT DATE: 20250101
